FAERS Safety Report 5060287-1 (Version None)
Quarter: 2006Q3

REPORT INFORMATION
  Report Type: 
  Country: None (occurrence: None)
  Receive Date: 20060720
  Receipt Date: 20060710
  Transmission Date: 20061208
  Serious: Yes (Hospitalization, Other)
  Sender: FDA-Public Use
  Company Number: GXKR2006FR03598

PATIENT
  Age: 38 Year
  Sex: Male

DRUGS (3)
  1. SULFADIAZINE [Suspect]
     Indication: TOXOPLASMOSIS
     Dosage: 4 G/DAY
  2. PYRIMETHAMINE TAB [Concomitant]
  3. CLINDAMYCIN [Concomitant]

REACTIONS (11)
  - ABDOMINAL PAIN [None]
  - BACK PAIN [None]
  - ELECTROCARDIOGRAM QRS COMPLEX PROLONGED [None]
  - FLATULENCE [None]
  - HAEMODIALYSIS [None]
  - HYDRONEPHROSIS [None]
  - HYPERKALAEMIA [None]
  - OBSTRUCTIVE UROPATHY [None]
  - RASH [None]
  - RENAL FAILURE [None]
  - VOMITING [None]
